FAERS Safety Report 8578139-9 (Version None)
Quarter: 2012Q3

REPORT INFORMATION
  Report Type: 
  Country: None (occurrence: None)
  Receive Date: 20120808
  Receipt Date: 20120726
  Transmission Date: 20120928
  Serious: Yes (Other)
  Sender: FDA-Public Use
  Company Number: GB-CELGENEUS-167-21880-12072905

PATIENT

DRUGS (3)
  1. REVLIMID [Suspect]
     Dosage: 7.5 MILLIGRAM
     Route: 048
  2. ENOXAPARIN SODIUM [Concomitant]
     Route: 065
  3. REVLIMID [Suspect]
     Dosage: 5 MILLIGRAM
     Route: 048

REACTIONS (2)
  - THROMBOTIC MICROANGIOPATHY [None]
  - LEUKOCYTOCLASTIC VASCULITIS [None]
